FAERS Safety Report 25007947 (Version 1)
Quarter: 2025Q1

REPORT INFORMATION
  Report Type: Spontaneous
  Country: US (occurrence: US)
  Receive Date: 20250225
  Receipt Date: 20250225
  Transmission Date: 20250409
  Serious: No
  Sender: AMNEAL
  Company Number: US-AMNEAL PHARMACEUTICALS-2024-AMRX-01595

PATIENT
  Sex: Female
  Weight: 54.4 kg

DRUGS (1)
  1. RIVASTIGMINE [Suspect]
     Active Substance: RIVASTIGMINE
     Indication: Product used for unknown indication
     Dosage: 4.6 MG IN 24 HOURS
     Route: 062
     Dates: start: 202404

REACTIONS (3)
  - Palpitations [Unknown]
  - Illness [Unknown]
  - Application site irritation [Unknown]
